FAERS Safety Report 8881271 (Version 1)
Quarter: 2012Q4

REPORT INFORMATION
  Report Type: Report from Study
  Country: FI (occurrence: FI)
  Receive Date: 20121031
  Receipt Date: 20121031
  Transmission Date: 20130627
  Serious: Yes (Hospitalization)
  Sender: FDA-Public Use
  Company Number: FI-TEVA-367625USA

PATIENT

DRUGS (3)
  1. BENDAMUSTINE [Suspect]
     Dates: start: 20120821
  2. LENALIDOMIDE [Suspect]
     Dates: start: 20120821
  3. RITUXIMAB [Suspect]
     Dates: start: 20120821

REACTIONS (4)
  - Pyrexia [Recovered/Resolved]
  - Bacterial infection [Recovered/Resolved]
  - Neutrophil count decreased [Unknown]
  - C-reactive protein increased [Unknown]
